FAERS Safety Report 8168894-4 (Version None)
Quarter: 2012Q1

REPORT INFORMATION
  Report Type: 
  Country: None (occurrence: None)
  Receive Date: 20120227
  Receipt Date: 20120215
  Transmission Date: 20120608
  Serious: No
  Sender: FDA-Public Use
  Company Number: US-B.I. PHARMACEUTICALS,INC./RIDGEFIELD-2012-BP-02982BP

PATIENT
  Sex: Female

DRUGS (2)
  1. DIOVAN HCT [Concomitant]
     Indication: HYPERTENSION
     Route: 048
  2. ATROVENT HFA [Suspect]
     Indication: EMPHYSEMA
     Route: 055
     Dates: start: 20110101

REACTIONS (4)
  - TREMOR [None]
  - DYSPNOEA [None]
  - DIZZINESS [None]
  - FEAR [None]
